FAERS Safety Report 7550435-3 (Version None)
Quarter: 2011Q2

REPORT INFORMATION
  Report Type: 
  Country: None (occurrence: None)
  Receive Date: 20110615
  Receipt Date: 20101217
  Transmission Date: 20111010
  Serious: No
  Sender: FDA-Public Use
  Company Number: US-BAUSCH-2010BL007174

PATIENT
  Age: 59 Year
  Sex: Male

DRUGS (4)
  1. SIMVASTATIN [Concomitant]
     Indication: BLOOD CHOLESTEROL INCREASED
     Route: 048
     Dates: start: 20060101
  2. ANDROGEL [Concomitant]
     Indication: BLOOD TESTOSTERONE DECREASED
     Route: 062
     Dates: start: 20090101
  3. GENTAMICIN SULFATE [Suspect]
     Indication: EYE INFECTION
     Route: 047
     Dates: start: 20101214
  4. BENICAR /USA/ [Concomitant]
     Indication: HYPERTENSION
     Route: 048
     Dates: start: 20070101

REACTIONS (1)
  - FAECES DISCOLOURED [None]
